FAERS Safety Report 19366996 (Version 2)
Quarter: 2021Q2

REPORT INFORMATION
  Report Type: Spontaneous
  Country: US (occurrence: US)
  Receive Date: 20210603
  Receipt Date: 20210622
  Transmission Date: 20210717
  Serious: Yes (Hospitalization, Other)
  Sender: FDA-Public Use
  Company Number: US-INDIVIOR LIMITED-INDV-129867-2021

PATIENT

DRUGS (1)
  1. SUBLOCADE [Suspect]
     Active Substance: BUPRENORPHINE
     Indication: DRUG DEPENDENCE
     Dosage: 100 MILLIGRAM, QMO
     Route: 065
     Dates: start: 201908

REACTIONS (4)
  - Oedema [Unknown]
  - Cardiac failure congestive [Unknown]
  - Drug withdrawal syndrome [Unknown]
  - Ascites [Unknown]

NARRATIVE: CASE EVENT DATE: 202105
